FAERS Safety Report 4383672-X (Version None)
Quarter: 2004Q2

REPORT INFORMATION
  Report Type: 
  Country: None (occurrence: None)
  Receive Date: 20040623
  Receipt Date: 20040611
  Transmission Date: 20050107
  Serious: Yes (Death, Hospitalization)
  Sender: FDA-Public Use
  Company Number: CN-GLAXOSMITHKLINE-B0335721A

PATIENT

DRUGS (1)
  1. ZEFFIX [Suspect]
     Indication: HEPATITIS B

REACTIONS (2)
  - DEATH [None]
  - HEPATITIS B [None]
